FAERS Safety Report 4706720-3 (Version None)
Quarter: 2005Q2

REPORT INFORMATION
  Report Type: 
  Country: None (occurrence: None)
  Receive Date: 20050629
  Receipt Date: 20050426
  Transmission Date: 20051028
  Serious: No
  Sender: FDA-Public Use
  Company Number: 05P-163-0298499-00

PATIENT
  Age: 83 Year
  Sex: Female
  Weight: 49.8957 kg

DRUGS (15)
  1. HUMIRA [Suspect]
     Indication: RHEUMATOID ARTHRITIS
     Dosage: 40 MG, 1 IN 2 WK, SUBCUTANEOUS
     Route: 058
     Dates: start: 20020101
  2. PREDNISONE [Concomitant]
  3. DIGOXIN [Concomitant]
  4. ALENDRONATE SODIUM [Concomitant]
  5. POTASSIUM CHLORIDE [Concomitant]
  6. SERTRALINE HYDROCHLORIDE [Concomitant]
  7. CANDESARTAN CILEXETIL [Concomitant]
  8. FUROSEMIDE [Concomitant]
  9. INSULIN GLARGINE [Concomitant]
  10. METHOTREXATE [Concomitant]
  11. ATORVASTATIN CALCIUM [Concomitant]
  12. FOLIC ACID [Concomitant]
  13. DOCUSATE SODIUM [Concomitant]
  14. VITAMINS [Concomitant]
  15. PROTENEX [Concomitant]

REACTIONS (1)
  - ACCIDENTAL OVERDOSE [None]
